FAERS Safety Report 8460740-4 (Version None)
Quarter: 2012Q2

REPORT INFORMATION
  Report Type: 
  Country: None (occurrence: None)
  Receive Date: 20120622
  Receipt Date: 20120612
  Transmission Date: 20120825
  Serious: Yes (Other)
  Sender: FDA-Public Use
  Company Number: US-ELI_LILLY_AND_COMPANY-US201206004146

PATIENT
  Sex: Male
  Weight: 122 kg

DRUGS (5)
  1. GLIPIZIDE [Concomitant]
     Indication: TYPE 2 DIABETES MELLITUS
     Dosage: 2.5 MG, EACH EVENING
     Route: 048
     Dates: start: 20120501
  2. ACTOS [Concomitant]
     Dosage: 15 MG, QD
     Route: 048
     Dates: start: 20120501
  3. BYETTA [Suspect]
     Indication: TYPE 2 DIABETES MELLITUS
     Dosage: 10 UG, BID
     Route: 058
  4. ACTOS [Concomitant]
     Dosage: 15 MG, UNK
  5. ACTOS [Concomitant]
     Indication: TYPE 2 DIABETES MELLITUS
     Dosage: 45 MG, UNK

REACTIONS (8)
  - MEDICATION ERROR [None]
  - BASAL CELL CARCINOMA [None]
  - BLOOD URINE PRESENT [None]
  - DYSURIA [None]
  - UNDERDOSE [None]
  - GLUCOSE URINE PRESENT [None]
  - MALIGNANT MELANOMA [None]
  - BLOOD GLUCOSE INCREASED [None]
